FAERS Safety Report 5955259-6 (Version None)
Quarter: 2008Q4

REPORT INFORMATION
  Report Type: 
  Country: None (occurrence: None)
  Receive Date: 20081117
  Receipt Date: 20081105
  Transmission Date: 20090506
  Serious: Yes (Other)
  Sender: FDA-Public Use
  Company Number: JP-BRISTOL-MYERS SQUIBB COMPANY-14210686

PATIENT
  Age: 40 Year
  Sex: Female
  Weight: 66 kg

DRUGS (12)
  1. ABILIFY [Suspect]
     Indication: SCHIZOPHRENIA
     Dosage: 12-15OC;9MG,16-22OC7;6MG,23OCT-3DE7;12MG,4DEC7-3JA8;6MG,4JAN-25FE8;7.5MG,26FE8-7AP8;12MG,8AP-14AU8
     Route: 048
     Dates: start: 20071012, end: 20080829
  2. LIPITOR [Concomitant]
     Dates: start: 20070804, end: 20071029
  3. RISPERDAL [Concomitant]
     Dates: start: 20070904, end: 20071203
  4. BROTIZOLAM [Concomitant]
     Dates: start: 20070904
  5. SILECE [Concomitant]
     Dates: start: 20070904
  6. FASTIC [Concomitant]
     Dates: start: 20070904, end: 20080501
  7. SENNOSIDE [Concomitant]
     Dates: start: 20070904, end: 20080104
  8. TRIHEXYPHENIDYL HCL [Concomitant]
     Dates: start: 20070904, end: 20080807
  9. SEDIEL [Concomitant]
     Dates: start: 20071005, end: 20071011
  10. AMOBAN [Concomitant]
     Dates: start: 20071011
  11. LORAZEPAM [Concomitant]
     Dates: start: 20071012
  12. CRESTOR [Concomitant]
     Dates: start: 20071029

REACTIONS (5)
  - ANAEMIA [None]
  - BLOOD GLUCOSE INCREASED [None]
  - HYPERTRIGLYCERIDAEMIA [None]
  - MUSCULAR WEAKNESS [None]
  - WEIGHT INCREASED [None]
